FAERS Safety Report 23952278 (Version 1)
Quarter: 2024Q2

REPORT INFORMATION
  Report Type: Spontaneous
  Country: US (occurrence: None)
  Receive Date: 20240607
  Receipt Date: 20240607
  Transmission Date: 20240716
  Serious: Yes (Life-Threatening, Hospitalization)
  Sender: FDA-Public Use
  Company Number: None

PATIENT
  Age: 68 Year
  Sex: Male
  Weight: 95.25 kg

DRUGS (11)
  1. MOUNJARO [Suspect]
     Active Substance: TIRZEPATIDE
     Indication: Glycosylated haemoglobin increased
     Dosage: 2.5 MG  1 G HOT INJECTION
     Dates: start: 20240325, end: 20240325
  2. HYDROCHLOROTHIAZIE [Concomitant]
  3. METFORMIN HYDROCHLORIDE [Concomitant]
     Active Substance: METFORMIN HYDROCHLORIDE
  4. LANTUS  SOZOSTAR V-100 [Concomitant]
  5. ELIQUIS [Concomitant]
     Active Substance: APIXABAN
  6. ATORVASTATIN [Concomitant]
     Active Substance: ATORVASTATIN
  7. BREZTRS [Concomitant]
  8. DILTAZEM [Concomitant]
  9. ENALAPRIL [Concomitant]
     Active Substance: ENALAPRIL
  10. JARDIANCE [Concomitant]
     Active Substance: EMPAGLIFLOZIN
  11. PIOGLITAZONE [Concomitant]
     Active Substance: PIOGLITAZONE

REACTIONS (8)
  - Diarrhoea [None]
  - Vomiting [None]
  - Cold sweat [None]
  - Tremor [None]
  - Dysstasia [None]
  - Diabetic ketoacidosis [None]
  - Sepsis [None]
  - Renal injury [None]

NARRATIVE: CASE EVENT DATE: 20240327
